FAERS Safety Report 20500381 (Version 1)
Quarter: 2022Q1

REPORT INFORMATION
  Report Type: Spontaneous
  Country: US (occurrence: None)
  Receive Date: 20220219
  Receipt Date: 20220219
  Transmission Date: 20220423
  Serious: Yes (Hospitalization)
  Sender: FDA-Public Use
  Company Number: None

PATIENT
  Sex: Female
  Weight: 45.5 kg

DRUGS (1)
  1. ASPIRIN [Suspect]
     Active Substance: ASPIRIN
     Indication: Product used for unknown indication

REACTIONS (7)
  - Nausea [None]
  - Abdominal pain [None]
  - Nausea [None]
  - Vomiting [None]
  - Helicobacter infection [None]
  - Abdominal pain upper [None]
  - Non-cardiac chest pain [None]

NARRATIVE: CASE EVENT DATE: 20220123
